FAERS Safety Report 23031101 (Version 2)
Quarter: 2023Q4

REPORT INFORMATION
  Report Type: Spontaneous
  Country: BE (occurrence: BE)
  Receive Date: 20231005
  Receipt Date: 20231112
  Transmission Date: 20240110
  Serious: Yes (Other)
  Sender: FDA-Public Use
  Company Number: BE-JNJFOC-20230962068

PATIENT
  Sex: Female

DRUGS (2)
  1. SPRAVATO [Suspect]
     Active Substance: ESKETAMINE
     Indication: Product used for unknown indication
  2. SPRAVATO [Suspect]
     Active Substance: ESKETAMINE
     Dates: start: 20230918

REACTIONS (9)
  - Hallucination [Unknown]
  - Paraesthesia [Unknown]
  - Taste disorder [Unknown]
  - Dissociation [Unknown]
  - Nausea [Unknown]
  - Vomiting [Unknown]
  - Panic disorder [Unknown]
  - Akathisia [Unknown]
  - Drug effect faster than expected [Unknown]

NARRATIVE: CASE EVENT DATE: 20230918
